FAERS Safety Report 23367120 (Version 4)
Quarter: 2024Q2

REPORT INFORMATION
  Report Type: Report from Study
  Country: NL (occurrence: NL)
  Receive Date: 20240104
  Receipt Date: 20240420
  Transmission Date: 20240716
  Serious: Yes (Other)
  Sender: FDA-Public Use
  Company Number: NL-ABBVIE-5512738

PATIENT
  Sex: Male
  Weight: 76 kg

DRUGS (10)
  1. CARBIDOPA\LEVODOPA [Suspect]
     Active Substance: CARBIDOPA\LEVODOPA
     Indication: Parkinson^s disease
     Dosage: MD: 11.8ML CD: 4.2ML ED: 3.6ML?REMAINS AT 16 HOURS
     Route: 050
     Dates: start: 20230817
  2. CARBIDOPA\LEVODOPA [Suspect]
     Active Substance: CARBIDOPA\LEVODOPA
     Route: 050
     Dates: start: 20200921
  3. CARBIDOPA\LEVODOPA [Suspect]
     Active Substance: CARBIDOPA\LEVODOPA
     Route: 050
  4. CARBIDOPA\LEVODOPA [Suspect]
     Active Substance: CARBIDOPA\LEVODOPA
     Dosage: MD: 11.8ML CD: 4.1ML ED: 3.6ML?REMAINS AT 16 HOURS
     Route: 050
     Dates: start: 20230815, end: 20230817
  5. CARBIDOPA\LEVODOPA [Suspect]
     Active Substance: CARBIDOPA\LEVODOPA
     Route: 050
  6. CARBIDOPA\LEVODOPA [Suspect]
     Active Substance: CARBIDOPA\LEVODOPA
     Dosage: MD: 11.8ML CD: 4.1ML ED: 3.6ML?REMAINS AT 16 HOURS
     Route: 050
     Dates: start: 20230509, end: 20230815
  7. CARBIDOPA\LEVODOPA [Suspect]
     Active Substance: CARBIDOPA\LEVODOPA
     Route: 050
  8. AMITRIPTYLINE [Concomitant]
     Active Substance: AMITRIPTYLINE
     Indication: Parkinson^s disease
     Route: 048
  9. ROPINIROLE [Concomitant]
     Active Substance: ROPINIROLE
     Indication: Parkinson^s disease
     Route: 048
  10. CARBIDOPA LEVODOPA [Concomitant]
     Active Substance: CARBIDOPA\LEVODOPA
     Indication: Parkinson^s disease
     Dosage: CONTROLLED RELEASE
     Route: 065
     Dates: start: 20200922

REACTIONS (23)
  - Lymphadenopathy [Not Recovered/Not Resolved]
  - Dyskinesia [Not Recovered/Not Resolved]
  - Device leakage [Recovered/Resolved]
  - Muscle rigidity [Not Recovered/Not Resolved]
  - Tonsil cancer [Not Recovered/Not Resolved]
  - Skin wound [Unknown]
  - Oropharyngeal squamous cell carcinoma [Not Recovered/Not Resolved]
  - Stoma site discharge [Recovering/Resolving]
  - Complication of device removal [Not Recovered/Not Resolved]
  - Bradykinesia [Not Recovered/Not Resolved]
  - Weight decreased [Not Recovered/Not Resolved]
  - Stoma site reaction [Recovering/Resolving]
  - On and off phenomenon [Not Recovered/Not Resolved]
  - Sensation of foreign body [Not Recovered/Not Resolved]
  - Gait inability [Not Recovered/Not Resolved]
  - Stoma site oedema [Not Recovered/Not Resolved]
  - Tension [Not Recovered/Not Resolved]
  - Sleep deficit [Not Recovered/Not Resolved]
  - Musculoskeletal disorder [Not Recovered/Not Resolved]
  - Condom catheter placement [Not Recovered/Not Resolved]
  - Pharyngeal swelling [Unknown]
  - Tension [Not Recovered/Not Resolved]
  - Stoma site reaction [Unknown]

NARRATIVE: CASE EVENT DATE: 20230101
